FAERS Safety Report 5313027-2 (Version None)
Quarter: 2007Q2

REPORT INFORMATION
  Report Type: 
  Country: None (occurrence: None)
  Receive Date: 20070424
  Receipt Date: 20070402
  Transmission Date: 20071010
  Serious: Yes (Other)
  Sender: FDA-Public Use
  Company Number: 2007US-06874

PATIENT
  Age: 24 Year
  Sex: Male

DRUGS (3)
  1. CIPORFLOXACIN (CIPORFLOXACIN) TABLET,  500 MG [Suspect]
     Indication: DIVERTICULITIS
     Dosage: 500 MG, BID, ORAL
     Route: 048
     Dates: start: 20070209, end: 20070213
  2. SYNTHROID [Concomitant]
  3. ACIPHEX [Concomitant]

REACTIONS (13)
  - ANXIETY [None]
  - ASTHENIA [None]
  - BURNING SENSATION [None]
  - HALLUCINATION [None]
  - HYPOAESTHESIA [None]
  - MUSCLE RUPTURE [None]
  - MUSCULAR WEAKNESS [None]
  - PANIC REACTION [None]
  - RASH [None]
  - TENDON RUPTURE [None]
  - TINNITUS [None]
  - TREMOR [None]
  - VISION BLURRED [None]
